FAERS Safety Report 24585876 (Version 1)
Quarter: 2024Q4

REPORT INFORMATION
  Report Type: Spontaneous
  Country: US (occurrence: US)
  Receive Date: 20241106
  Receipt Date: 20241106
  Transmission Date: 20250115
  Serious: Yes (Life-Threatening, Other)
  Sender: ALEXION PHARMACEUTICALS
  Company Number: US-AstraZeneca-CH-00710874A

PATIENT
  Age: 76 Year
  Weight: 90.264 kg

DRUGS (12)
  1. BRILINTA [Suspect]
     Active Substance: TICAGRELOR
  2. BRILINTA [Suspect]
     Active Substance: TICAGRELOR
  3. BRILINTA [Suspect]
     Active Substance: TICAGRELOR
  4. BRILINTA [Suspect]
     Active Substance: TICAGRELOR
  5. CRESTOR [Suspect]
     Active Substance: ROSUVASTATIN CALCIUM
  6. CRESTOR [Suspect]
     Active Substance: ROSUVASTATIN CALCIUM
  7. CRESTOR [Suspect]
     Active Substance: ROSUVASTATIN CALCIUM
  8. CRESTOR [Suspect]
     Active Substance: ROSUVASTATIN CALCIUM
  9. TAFAMIDIS [Suspect]
     Active Substance: TAFAMIDIS
     Route: 065
  10. TAFAMIDIS [Suspect]
     Active Substance: TAFAMIDIS
  11. TAFAMIDIS [Suspect]
     Active Substance: TAFAMIDIS
     Route: 065
  12. TAFAMIDIS [Suspect]
     Active Substance: TAFAMIDIS

REACTIONS (4)
  - Cardiac failure [Unknown]
  - Cardiac amyloidosis [Unknown]
  - Abdominal discomfort [Unknown]
  - Dizziness [Unknown]
